FAERS Safety Report 4971400-6 (Version None)
Quarter: 2006Q2

REPORT INFORMATION
  Report Type: 
  Country: None (occurrence: None)
  Receive Date: 20060411
  Receipt Date: 20060411
  Transmission Date: 20061013
  Serious: Yes (Hospitalization)
  Sender: FDA-Public Use
  Company Number: None

PATIENT
  Age: 67 Year
  Sex: Male
  Weight: 82.7 kg

DRUGS (8)
  1. TAXOTERE [Suspect]
     Indication: BLADDER CANCER
     Dosage: 25 MG/M2 TOTAL DOSE 49MG WEEKLY X 4 WEEKS IV
     Route: 042
     Dates: start: 20060308
  2. TAXOTERE [Suspect]
     Indication: BLADDER CANCER
     Dosage: 25 MG/M2 TOTAL DOSE 49MG WEEKLY X 4 WEEKS IV
     Route: 042
     Dates: start: 20060315
  3. DEXAMETHASONE 4MG TAB [Suspect]
     Indication: PREMEDICATION
     Dosage: DEXAMETHASONE 10 MG PRE-MED IV
     Route: 042
     Dates: start: 20060308
  4. DEXAMETHASONE 4MG TAB [Suspect]
     Indication: PREMEDICATION
     Dosage: DEXAMETHASONE 10 MG PRE-MED IV
     Route: 042
     Dates: start: 20060314
  5. NEURONTIN [Concomitant]
  6. ALLEGRA [Concomitant]
  7. MAGNESIUM [Concomitant]
  8. MULTI VITAMIN CENTRUM DAILY [Concomitant]

REACTIONS (2)
  - ATRIAL FIBRILLATION [None]
  - THERAPY NON-RESPONDER [None]
